FAERS Safety Report 5424259-7 (Version None)
Quarter: 2007Q3

REPORT INFORMATION
  Report Type: 
  Country: None (occurrence: None)
  Receive Date: 20070822
  Receipt Date: 20070806
  Transmission Date: 20080115
  Serious: Yes (Life-Threatening, Hospitalization)
  Sender: FDA-Public Use
  Company Number: DSA_30402_2007

PATIENT
  Sex: Female

DRUGS (3)
  1. LORAZEPAM [Suspect]
     Dosage: 7.5 MG 1X ORAL
     Route: 048
     Dates: start: 20070804, end: 20070804
  2. MIRTAZAPINE [Suspect]
     Dosage: 600 MG 1X ORAL
     Route: 048
     Dates: start: 20070804, end: 20070804
  3. ETHANOL (ALCOHOL - WINE) [Suspect]
     Dosage: 1 1 1X ORAL
     Route: 048
     Dates: start: 20070804, end: 20070804

REACTIONS (3)
  - MULTIPLE DRUG OVERDOSE [None]
  - SUICIDE ATTEMPT [None]
  - TACHYCARDIA [None]
